FAERS Safety Report 13385796 (Version 2)
Quarter: 2017Q2

REPORT INFORMATION
  Report Type: Spontaneous
  Country: AR (occurrence: AR)
  Receive Date: 20170330
  Receipt Date: 20170407
  Transmission Date: 20170830
  Serious: Yes (Other)
  Sender: FDA-Public Use
  Company Number: AR-SUN PHARMACEUTICAL INDUSTRIES LTD-2017RR-136373

PATIENT
  Age: 9 Day
  Sex: Female

DRUGS (1)
  1. PARACETAMOL [Suspect]
     Active Substance: ACETAMINOPHEN
     Indication: PATENT DUCTUS ARTERIOSUS
     Dosage: DOSE 20 TIMES GREATER THAN REQUIRED
     Route: 065

REACTIONS (2)
  - Overdose [Recovering/Resolving]
  - Medication error [Recovering/Resolving]
